FAERS Safety Report 8357291-4 (Version None)
Quarter: 2012Q2

REPORT INFORMATION
  Report Type: 
  Country: None (occurrence: None)
  Receive Date: 20120514
  Receipt Date: 20120510
  Transmission Date: 20120825
  Serious: Yes (Other)
  Sender: FDA-Public Use
  Company Number: PHEH2012US008951

PATIENT
  Sex: Female

DRUGS (20)
  1. KLONOPIN [Concomitant]
     Dosage: 1 MG, UNK
  2. NEURONTIN [Concomitant]
     Dosage: 100 MG, UNK
     Route: 048
  3. PEPCID [Concomitant]
     Dosage: 20 MG, UNK
  4. ASCORBIC ACID [Concomitant]
     Dosage: 500 MG, UNK
  5. EVENING PRIMROSE OIL [Concomitant]
     Dosage: 1000 MG, UNK
  6. TOPAMAX [Concomitant]
     Dosage: 25 MG, UNK
  7. VITAMIN D [Concomitant]
  8. ZANAFLEX [Concomitant]
     Dosage: 2 MG, UNK
     Route: 048
  9. GILENYA [Suspect]
     Dosage: 0.5 MG, QD
     Route: 048
     Dates: start: 20110501, end: 20110530
  10. FLAXSEED OIL [Concomitant]
     Dosage: 1000 MG, UNK
  11. TURMERIC [Concomitant]
     Dosage: 500 MG, UNK
  12. MULTIVITAMIN [Concomitant]
  13. PAMELOR [Concomitant]
  14. CITALOPRAM [Concomitant]
     Dosage: 10 MG, UNK
  15. VITAMIN B-12 [Concomitant]
     Dosage: 1000 U, UNK
  16. MAGNESIUM [Concomitant]
     Dosage: 300 MG, UNK
  17. ZOCOR [Concomitant]
     Dosage: 10 MG, UNK
     Route: 048
  18. NORTRIPTYLINE HCL [Concomitant]
     Dosage: 10 MG, UNK
  19. METFORMIN HCL [Concomitant]
     Dosage: 500 MG, UNK
  20. VITAMIN B6 [Concomitant]
     Dosage: 250 MG, UNK

REACTIONS (6)
  - OEDEMA [None]
  - OEDEMA PERIPHERAL [None]
  - WEIGHT INCREASED [None]
  - LUNG DISORDER [None]
  - WHEEZING [None]
  - COUGH [None]
